FAERS Safety Report 12491882 (Version 2)
Quarter: 2016Q3

REPORT INFORMATION
  Report Type: Report from Study
  Country: HU (occurrence: HU)
  Receive Date: 20160623
  Receipt Date: 20160706
  Transmission Date: 20161109
  Serious: Yes (Hospitalization)
  Sender: FDA-Public Use
  Company Number: HU-ROCHE-1770100

PATIENT
  Age: 76 Year
  Sex: Male

DRUGS (17)
  1. VENETOCLAX [Suspect]
     Active Substance: VENETOCLAX
     Route: 048
     Dates: start: 20150305, end: 20150311
  2. RITUXIMAB [Suspect]
     Active Substance: RITUXIMAB
     Dosage: MOST RECENT DOSE: /AUG/2015
     Route: 042
     Dates: start: 20150416
  3. BETALOC ZOK [Concomitant]
     Active Substance: METOPROLOL SUCCINATE
     Indication: HYPERTENSION
     Route: 065
     Dates: start: 2008
  4. VENETOCLAX [Suspect]
     Active Substance: VENETOCLAX
     Route: 048
     Dates: start: 20150219, end: 20150225
  5. CO-PERINEVA [Concomitant]
     Indication: HYPERTENSION
     Route: 065
     Dates: start: 20150212
  6. KLION (METRONIDAZOLE) [Concomitant]
     Route: 065
     Dates: start: 20160327, end: 20160407
  7. DOXAZOSIN HEXAL [Concomitant]
     Indication: HYPERTENSION
     Route: 065
     Dates: start: 2014
  8. ALGOPYRIN [Concomitant]
     Active Substance: METAMIZOLE SODIUM
     Indication: PYREXIA
     Route: 065
     Dates: start: 20150227, end: 20150228
  9. VENETOCLAX [Suspect]
     Active Substance: VENETOCLAX
     Route: 048
     Dates: start: 20150226, end: 20150304
  10. VENETOCLAX [Suspect]
     Active Substance: VENETOCLAX
     Route: 048
     Dates: start: 20150312, end: 20160311
  11. VENETOCLAX [Suspect]
     Active Substance: VENETOCLAX
     Route: 048
     Dates: start: 20160317
  12. MILURIT [Concomitant]
     Active Substance: ALLOPURINOL
     Route: 065
     Dates: start: 20150212, end: 20150213
  13. RITUXIMAB [Suspect]
     Active Substance: RITUXIMAB
     Indication: CHRONIC LYMPHOCYTIC LEUKAEMIA
     Route: 042
     Dates: start: 20150319, end: 20150319
  14. VIDONORM [Concomitant]
     Indication: HYPERTENSION
     Route: 065
     Dates: start: 2014, end: 20160316
  15. KLION (METRONIDAZOLE) [Concomitant]
     Indication: DIARRHOEA
     Route: 065
     Dates: start: 20150305
  16. PARACETAMOL [Concomitant]
     Active Substance: ACETAMINOPHEN
     Indication: PYREXIA
     Route: 065
     Dates: start: 20160228, end: 20160302
  17. VENETOCLAX [Suspect]
     Active Substance: VENETOCLAX
     Indication: CHRONIC LYMPHOCYTIC LEUKAEMIA
     Route: 048
     Dates: start: 20150212, end: 20150218

REACTIONS (1)
  - Campylobacter gastroenteritis [Recovered/Resolved]

NARRATIVE: CASE EVENT DATE: 20160326
